FAERS Safety Report 17537312 (Version 1)
Quarter: 2020Q1

REPORT INFORMATION
  Report Type: Spontaneous
  Country: GB (occurrence: GB)
  Receive Date: 20200313
  Receipt Date: 20200313
  Transmission Date: 20200409
  Serious: Yes (Other)
  Sender: FDA-Public Use
  Company Number: GB-TEVA-2020-GB-1200114

PATIENT
  Age: 24 Year
  Sex: Female

DRUGS (1)
  1. CINQAERO [Suspect]
     Active Substance: RESLIZUMAB
     Route: 042

REACTIONS (4)
  - Dizziness [Recovered/Resolved]
  - Epileptic aura [Recovered/Resolved]
  - Nausea [Recovered/Resolved]
  - Feeling hot [Recovered/Resolved]

NARRATIVE: CASE EVENT DATE: 20190918
